FAERS Safety Report 6213175-9 (Version None)
Quarter: 2009Q2

REPORT INFORMATION
  Report Type: 
  Country: None (occurrence: None)
  Receive Date: 20090528
  Receipt Date: 20090414
  Transmission Date: 20091009
  Serious: No
  Sender: FDA-Public Use
  Company Number: MC200900136

PATIENT
  Sex: Male

DRUGS (3)
  1. CLEVIPREX [Suspect]
     Indication: CAROTID ENDARTERECTOMY
     Dosage: 1-2 MG, HR, INTRAVENOUS; 4-6 MG, HR, INTRAVENOUS; UP TO 30 MG, HR, INTRAVENOUS
     Route: 042
     Dates: start: 20090414, end: 20090414
  2. CLEVIPREX [Suspect]
     Indication: CAROTID ENDARTERECTOMY
     Dosage: 1-2 MG, HR, INTRAVENOUS; 4-6 MG, HR, INTRAVENOUS; UP TO 30 MG, HR, INTRAVENOUS
     Route: 042
     Dates: start: 20090414, end: 20090414
  3. CLEVIPREX [Suspect]
     Indication: CAROTID ENDARTERECTOMY
     Dosage: 1-2 MG, HR, INTRAVENOUS; 4-6 MG, HR, INTRAVENOUS; UP TO 30 MG, HR, INTRAVENOUS
     Route: 042
     Dates: start: 20090414

REACTIONS (2)
  - BLOOD PRESSURE INCREASED [None]
  - HEART RATE INCREASED [None]
